FAERS Safety Report 13132838 (Version 2)
Quarter: 2017Q2

REPORT INFORMATION
  Report Type: Report from Study
  Country: JP (occurrence: JP)
  Receive Date: 20170120
  Receipt Date: 20170601
  Transmission Date: 20170830
  Serious: Yes (Death, Hospitalization)
  Sender: FDA-Public Use
  Company Number: JP-AMGEN-JPNCT2017009720

PATIENT
  Age: 66 Year
  Sex: Female
  Weight: 51 kg

DRUGS (17)
  1. MUCODYNE [Concomitant]
     Active Substance: CARBOCYSTEINE
     Indication: BRONCHITIS CHRONIC
     Dosage: 1500 MG, UNK
     Route: 048
  2. MAINTATE [Concomitant]
     Active Substance: BISOPROLOL FUMARATE
     Indication: CONGESTIVE CARDIOMYOPATHY
     Dosage: 0.625 MG, UNK
     Route: 048
     Dates: end: 20150905
  3. SELARA [Concomitant]
     Active Substance: EPLERENONE
     Indication: CONGESTIVE CARDIOMYOPATHY
     Dosage: 25 MG, UNK
     Route: 048
     Dates: end: 20150810
  4. MARZULENE-S [Concomitant]
     Active Substance: SODIUM GUALENATE
     Indication: CHRONIC GASTRITIS
     Dosage: 3 G, UNK
     Route: 048
     Dates: end: 20150807
  5. DIAMOX SEQUELS [Concomitant]
     Active Substance: ACETAZOLAMIDE
     Indication: CARDIAC FAILURE CHRONIC
     Dosage: 250 MG, UNK
     Route: 048
     Dates: start: 20151013
  6. WARFARIN [Concomitant]
     Active Substance: WARFARIN
     Indication: CARDIAC RESYNCHRONISATION THERAPY
     Dosage: 1.5 MG, UNK
     Route: 048
  7. PIMOBENDAN [Concomitant]
     Active Substance: PIMOBENDAN
     Indication: CONGESTIVE CARDIOMYOPATHY
     Dosage: 5 MG, UNK
     Route: 048
     Dates: end: 20150908
  8. THYRADIN S [Concomitant]
     Active Substance: LEVOTHYROXINE SODIUM
     Indication: HYPOTHYROIDISM
     Dosage: 25 MUG, UNK
     Route: 048
  9. RENIVACE [Concomitant]
     Active Substance: ENALAPRIL
     Indication: CONGESTIVE CARDIOMYOPATHY
     Dosage: 7.5 MG, UNK
     Route: 048
     Dates: end: 20150501
  10. SAMSCA [Concomitant]
     Active Substance: TOLVAPTAN
     Indication: CARDIAC FAILURE CHRONIC
     Dosage: 15 MG, UNK
     Route: 048
     Dates: end: 20150905
  11. FEBURIC [Concomitant]
     Active Substance: FEBUXOSTAT
     Indication: HYPERURICAEMIA
     Dosage: 10 MG, UNK
     Route: 048
  12. MAGLAX [Concomitant]
     Active Substance: MAGNESIUM OXIDE
     Indication: CONSTIPATION
     Dosage: 2250 MG, UNK
     Route: 048
  13. CINACALCET HCL [Suspect]
     Active Substance: CINACALCET HYDROCHLORIDE
     Indication: HYPERPARATHYROIDISM PRIMARY
     Dosage: 25 MG, QD
     Route: 048
     Dates: start: 20140619
  14. DIART [Concomitant]
     Active Substance: AZOSEMIDE
     Indication: CARDIAC FAILURE CHRONIC
     Dosage: 60 MG, UNK
     Route: 048
     Dates: end: 20150801
  15. TRICHLORMETHIAZIDE [Concomitant]
     Active Substance: TRICHLORMETHIAZIDE
     Indication: CARDIAC FAILURE CHRONIC
     Dosage: 1 MG, UNK
     Route: 048
     Dates: start: 20150801
  16. LASIX [Concomitant]
     Active Substance: FUROSEMIDE
     Indication: CARDIAC FAILURE CHRONIC
     Dosage: 40 MG, UNK
     Route: 048
  17. ANCARON [Concomitant]
     Active Substance: AMIODARONE HYDROCHLORIDE
     Indication: CONGESTIVE CARDIOMYOPATHY
     Dosage: 100 MG, UNK
     Route: 048
     Dates: end: 20150908

REACTIONS (7)
  - Cardiac failure [Recovering/Resolving]
  - Cardiac failure [Recovering/Resolving]
  - Cardiac failure [Fatal]
  - Cardiac failure [Recovering/Resolving]
  - Cardiac failure [Recovering/Resolving]
  - Cardiac failure [Recovering/Resolving]
  - Cardiac failure [Recovering/Resolving]

NARRATIVE: CASE EVENT DATE: 20140627
